FAERS Safety Report 6120590-0 (Version None)
Quarter: 2009Q1

REPORT INFORMATION
  Report Type: 
  Country: None (occurrence: None)
  Receive Date: 20090312
  Receipt Date: 20090312
  Transmission Date: 20090719
  Serious: Yes (Other)
  Sender: FDA-Public Use
  Company Number: None

PATIENT
  Age: 28 Year
  Sex: Male
  Weight: 63.5036 kg

DRUGS (1)
  1. AVELOX [Suspect]
     Indication: PNEUMONIA
     Dosage: 400MG 1/DAY PO
     Route: 048
     Dates: start: 20090307, end: 20090309

REACTIONS (4)
  - COMMUNICATION DISORDER [None]
  - DISORIENTATION [None]
  - DISTURBANCE IN ATTENTION [None]
  - DIZZINESS [None]
